FAERS Safety Report 24605038 (Version 1)
Quarter: 2024Q4

REPORT INFORMATION
  Report Type: Spontaneous
  Country: DE (occurrence: DE)
  Receive Date: 20241111
  Receipt Date: 20241111
  Transmission Date: 20250115
  Serious: Yes (Other)
  Sender: ALEXION PHARMACEUTICALS
  Company Number: DE-ASTRAZENECA-202410EEA026322DE

PATIENT

DRUGS (4)
  1. KOSELUGO [Suspect]
     Active Substance: SELUMETINIB
     Indication: Neurofibromatosis
     Dosage: UNK
  2. KOSELUGO [Suspect]
     Active Substance: SELUMETINIB
     Dosage: UNK
  3. KOSELUGO [Suspect]
     Active Substance: SELUMETINIB
     Dosage: UNK
  4. KOSELUGO [Suspect]
     Active Substance: SELUMETINIB
     Dosage: UNK

REACTIONS (1)
  - Pulmonary embolism [Unknown]
